FAERS Safety Report 9097970 (Version 1)
Quarter: 2013Q1

REPORT INFORMATION
  Report Type: Spontaneous
  Country: FR (occurrence: FR)
  Receive Date: 20130212
  Receipt Date: 20130212
  Transmission Date: 20140127
  Serious: Yes (Hospitalization)
  Sender: FDA-Public Use
  Company Number: FR-BAYER-2013-015346

PATIENT
  Age: 35 Year
  Sex: Female
  Weight: 60 kg

DRUGS (2)
  1. DROSPIRENONE + ETHINYLESTRADIOL [Suspect]
     Dosage: UNK
     Dates: start: 2008
  2. MIRENA [Suspect]
     Dosage: 20 MCG/24HR, CONT
     Route: 015
     Dates: start: 2006, end: 2008

REACTIONS (3)
  - Pulmonary embolism [Recovered/Resolved]
  - Weight increased [None]
  - Dyspnoea [None]
